FAERS Safety Report 19812789 (Version 4)
Quarter: 2021Q4

REPORT INFORMATION
  Report Type: Report from Study
  Country: US (occurrence: US)
  Receive Date: 20210909
  Receipt Date: 20211231
  Transmission Date: 20220304
  Serious: Yes (Other)
  Sender: FDA-Public Use
  Company Number: US-NOVARTISTESTPH-NVSC2021US204109

PATIENT
  Age: 73 Year
  Sex: Male

DRUGS (3)
  1. ENTRESTO [Suspect]
     Active Substance: SACUBITRIL\VALSARTAN
     Indication: Product used for unknown indication
     Dosage: UNK
     Route: 065
  2. OXYBUTYNIN [Concomitant]
     Active Substance: OXYBUTYNIN
     Indication: Product used for unknown indication
     Dosage: UNK
     Route: 065
  3. INSULIN NOS [Concomitant]
     Active Substance: INSULIN NOS
     Indication: Diabetes mellitus
     Route: 065

REACTIONS (11)
  - Parkinson^s disease [Unknown]
  - Hypoacusis [Unknown]
  - Hepatic steatosis [Unknown]
  - Nausea [Unknown]
  - Stress [Unknown]
  - Insomnia [Unknown]
  - Nightmare [Unknown]
  - Rotator cuff syndrome [Unknown]
  - Fall [Unknown]
  - Arthralgia [Unknown]
  - Inappropriate schedule of product administration [Unknown]
